FAERS Safety Report 8185971-2 (Version None)
Quarter: 2012Q1

REPORT INFORMATION
  Report Type: 
  Country: None (occurrence: None)
  Receive Date: 20120305
  Receipt Date: 20120221
  Transmission Date: 20120608
  Serious: Yes (Other)
  Sender: FDA-Public Use
  Company Number: PL-MYLANLABS-2012S1004119

PATIENT
  Age: 52 Year
  Sex: Male

DRUGS (2)
  1. VENLAFAXINE [Suspect]
     Indication: DEPRESSION
     Dosage: 75 MG/DAY
     Route: 065
  2. CHLORPROTHIXENE [Interacting]
     Dosage: 30 MG/DAY
     Route: 065

REACTIONS (5)
  - INAPPROPRIATE ANTIDIURETIC HORMONE SECRETION [None]
  - DRUG INTERACTION [None]
  - AGITATION [None]
  - RESTLESSNESS [None]
  - ALTERED STATE OF CONSCIOUSNESS [None]
